FAERS Safety Report 17828466 (Version 5)
Quarter: 2021Q3

REPORT INFORMATION
  Report Type: Spontaneous
  Country: US (occurrence: US)
  Receive Date: 20200527
  Receipt Date: 20210922
  Transmission Date: 20211014
  Serious: Yes (Other)
  Sender: FDA-Public Use
  Company Number: US-PFIZER INC-2020207835

PATIENT
  Age: 73 Year
  Sex: Female
  Weight: 108.86 kg

DRUGS (2)
  1. IBRANCE [Suspect]
     Active Substance: PALBOCICLIB
     Indication: BREAST CANCER METASTATIC
     Dosage: 125 MG, CYCLIC (ONCE DAILY, 21 DAYS AND 7 DAY BREAK)
     Route: 048
     Dates: start: 202005
  2. IBRANCE [Suspect]
     Active Substance: PALBOCICLIB
     Dosage: 125 MG

REACTIONS (14)
  - Neoplasm progression [Unknown]
  - Glossodynia [Unknown]
  - Pruritus [Not Recovered/Not Resolved]
  - Product use complaint [Unknown]
  - Malaise [Unknown]
  - Renal disorder [Unknown]
  - Neuropathy peripheral [Not Recovered/Not Resolved]
  - Arthropathy [Unknown]
  - Condition aggravated [Not Recovered/Not Resolved]
  - Tongue disorder [Unknown]
  - Stomatitis [Not Recovered/Not Resolved]
  - Anxiety [Unknown]
  - Tooth disorder [Unknown]
  - Weight increased [Unknown]

NARRATIVE: CASE EVENT DATE: 202006
